FAERS Safety Report 14324423 (Version 3)
Quarter: 2019Q1

REPORT INFORMATION
  Report Type: Spontaneous
  Country: US (occurrence: US)
  Receive Date: 20171226
  Receipt Date: 20190327
  Transmission Date: 20190417
  Serious: Yes (Other)
  Sender: FDA-Public Use
  Company Number: US-DSJP-DSU-2017-158882

PATIENT

DRUGS (10)
  1. BENICAR [Suspect]
     Active Substance: OLMESARTAN MEDOXOMIL
     Indication: HYPERTENSION
     Dosage: 40 MG, QD
     Route: 048
  2. BENICAR [Interacting]
     Active Substance: OLMESARTAN MEDOXOMIL
     Dosage: UNK
     Route: 065
     Dates: end: 201702
  3. BENICAR [Suspect]
     Active Substance: OLMESARTAN MEDOXOMIL
     Indication: HYPERTENSION
     Dosage: 10 MG, QD
     Route: 048
     Dates: end: 201712
  4. ELIQUIS [Concomitant]
     Active Substance: APIXABAN
     Indication: ANTICOAGULANT THERAPY
     Route: 065
  5. BENICAR [Interacting]
     Active Substance: OLMESARTAN MEDOXOMIL
     Dosage: 20 MG, QAM
     Route: 048
     Dates: start: 2019, end: 2019
  6. DIGOXIN. [Interacting]
     Active Substance: DIGOXIN
     Indication: ATRIAL FIBRILLATION
     Dosage: UNK
     Route: 065
  7. AMIODARONE [Concomitant]
     Active Substance: AMIODARONE
     Indication: ATRIAL FIBRILLATION
     Dosage: UNK
     Route: 065
  8. BENICAR [Interacting]
     Active Substance: OLMESARTAN MEDOXOMIL
     Dosage: 4 TABS. PO QAM AND 2 TABS PO QPM
     Route: 048
     Dates: start: 201903
  9. OLMESARTAN AG [Suspect]
     Active Substance: OLMESARTAN MEDOXOMIL
     Indication: HYPERTENSION
     Dosage: 10 MG, QD
     Route: 048
     Dates: start: 2017, end: 201712
  10. BENICAR [Interacting]
     Active Substance: OLMESARTAN MEDOXOMIL
     Dosage: 5 MG QAM
     Route: 048

REACTIONS (7)
  - Dizziness [Unknown]
  - Off label use [Unknown]
  - Feeling abnormal [Unknown]
  - Unevaluable event [Recovered/Resolved]
  - Atrial fibrillation [Not Recovered/Not Resolved]
  - Blood pressure increased [Unknown]
  - Drug interaction [Unknown]

NARRATIVE: CASE EVENT DATE: 2017
